FAERS Safety Report 15583410 (Version 1)
Quarter: 2018Q4

REPORT INFORMATION
  Report Type: Other
  Country: IT (occurrence: IT)
  Receive Date: 20181103
  Receipt Date: 20181103
  Transmission Date: 20190205
  Serious: Yes (Hospitalization)
  Sender: FDA-Public Use
  Company Number: IT-ACTELION-A-CH2018-181174

PATIENT

DRUGS (2)
  1. ZAVESCA [Suspect]
     Active Substance: MIGLUSTAT
     Indication: GLYCOGEN STORAGE DISEASE TYPE II
     Dosage: 80 MG/M2, Q2WEEK
     Route: 048
  2. MYOZYME [Suspect]
     Active Substance: ALGLUCOSIDASE ALFA
     Indication: GLYCOGEN STORAGE DISEASE TYPE II
     Dosage: 20-40 MG/KG/Q2WEEK
     Route: 042

REACTIONS (18)
  - Pneumonia [Unknown]
  - Paraesthesia [Unknown]
  - Gastroenteritis viral [Unknown]
  - Diarrhoea [Unknown]
  - Urethral dilation procedure [Unknown]
  - Respiratory distress [Unknown]
  - Headache [Unknown]
  - Upper respiratory tract infection [Unknown]
  - Device therapy [Unknown]
  - Flatulence [Unknown]
  - Weight decreased [Unknown]
  - Enterobiasis [Unknown]
  - Pyrexia [Unknown]
  - Urinary tract infection [Unknown]
  - Abdominal discomfort [Unknown]
  - Myalgia [Unknown]
  - Somnolence [Unknown]
  - Hand fracture [Unknown]
